FAERS Safety Report 10163924 (Version 1)
Quarter: 2014Q2

REPORT INFORMATION
  Report Type: Spontaneous
  Country: US (occurrence: US)
  Receive Date: 20140510
  Receipt Date: 20140510
  Transmission Date: 20141212
  Serious: Yes (Other)
  Sender: FDA-Public Use
  Company Number: US-JNJFOC-20140502219

PATIENT
  Age: 58 Year
  Sex: Female
  Weight: 106.6 kg

DRUGS (9)
  1. MOTRIN IB [Suspect]
     Route: 048
  2. MOTRIN IB [Suspect]
     Indication: PAIN
     Dosage: AS NEEDED
     Route: 048
  3. MOTRIN PM [Suspect]
     Indication: PAIN
     Dosage: 1 TO 2 CAPLETS
     Route: 048
  4. GLIPIZIDE [Concomitant]
     Indication: DIABETES MELLITUS
     Route: 065
  5. MULTIVITAMIN WITH OMEGA3 [Concomitant]
     Indication: NUTRITIONAL SUPPLEMENTATION
     Route: 065
  6. PEPCID AC [Concomitant]
     Indication: GASTROOESOPHAGEAL REFLUX DISEASE
     Dosage: 1 TO 2 TIMES PER DAY
     Route: 065
  7. ANTIHYPERTENSIVE (NOS) [Concomitant]
     Indication: HYPERTENSION
     Route: 065
  8. SIMVASTATIN [Concomitant]
     Indication: BLOOD CHOLESTEROL INCREASED
     Route: 065
  9. WARFARIN [Concomitant]
     Indication: ANTICOAGULANT THERAPY
     Route: 065

REACTIONS (1)
  - Renal injury [Not Recovered/Not Resolved]
